FAERS Safety Report 25230130 (Version 1)
Quarter: 2025Q2

REPORT INFORMATION
  Report Type: Spontaneous
  Country: CN (occurrence: CN)
  Receive Date: 20250423
  Receipt Date: 20250423
  Transmission Date: 20250716
  Serious: Yes (Other)
  Sender: PFIZER
  Company Number: CN-PFIZER INC-PV202500047050

PATIENT
  Age: 26 Year
  Sex: Female
  Weight: 60 kg

DRUGS (1)
  1. HEMABATE [Suspect]
     Active Substance: CARBOPROST TROMETHAMINE
     Indication: Uterine hypotonus
     Dosage: 250 UG, 1X/DAY
     Route: 030
     Dates: start: 20250415, end: 20250415

REACTIONS (5)
  - Sinus bradycardia [Recovering/Resolving]
  - Dyspnoea [Recovering/Resolving]
  - Chest pain [Recovering/Resolving]
  - Nausea [Recovering/Resolving]
  - Blood pressure increased [Recovering/Resolving]

NARRATIVE: CASE EVENT DATE: 20250415
